FAERS Safety Report 4316960-3 (Version None)
Quarter: 2004Q1

REPORT INFORMATION
  Report Type: 
  Country: None (occurrence: None)
  Receive Date: 20040312
  Receipt Date: 20040226
  Transmission Date: 20041129
  Serious: Yes (Hospitalization)
  Sender: FDA-Public Use
  Company Number: 233863

PATIENT
  Age: 68 Year
  Sex: Female
  Weight: 86.2 kg

DRUGS (1)
  1. NOVOLIN N [Suspect]
     Indication: INSULIN-REQUIRING TYPE II DIABETES MELLITUS
     Dosage: 55IU, SUBCUTANEOUS
     Route: 058
     Dates: start: 20030601, end: 20030601

REACTIONS (4)
  - FURUNCLE [None]
  - PHARMACEUTICAL PRODUCT COMPLAINT [None]
  - WOUND [None]
  - WOUND SECRETION [None]
